FAERS Safety Report 22150688 (Version 1)
Quarter: 2023Q1

REPORT INFORMATION
  Report Type: Spontaneous
  Country: US (occurrence: US)
  Receive Date: 20230329
  Receipt Date: 20230329
  Transmission Date: 20230417
  Serious: Yes (Other)
  Sender: FDA-Public Use
  Company Number: US-COOPERSURGICAL, INC.-US-2023CPS000575

PATIENT
  Age: 31 Year
  Sex: Female
  Weight: 108.84 kg

DRUGS (1)
  1. PARAGARD T 380A [Suspect]
     Active Substance: COPPER
     Indication: Product used for unknown indication
     Dosage: UNK
     Route: 015
     Dates: start: 2016

REACTIONS (8)
  - Phlebolith [Unknown]
  - Foreign body in reproductive tract [Not Recovered/Not Resolved]
  - Complication of device removal [Not Recovered/Not Resolved]
  - Device material issue [Not Recovered/Not Resolved]
  - Device expulsion [Not Recovered/Not Resolved]
  - Muscle spasms [Unknown]
  - Intermenstrual bleeding [Unknown]
  - Pain [Unknown]

NARRATIVE: CASE EVENT DATE: 20220912
